FAERS Safety Report 6303678-0 (Version None)
Quarter: 2009Q3

REPORT INFORMATION
  Report Type: 
  Country: None (occurrence: None)
  Receive Date: 20090810
  Receipt Date: 20090803
  Transmission Date: 20100115
  Serious: Yes (Death)
  Sender: FDA-Public Use
  Company Number: US-GILEAD-2009-0023466

PATIENT
  Sex: Female
  Weight: 72.64 kg

DRUGS (10)
  1. LETAIRIS [Suspect]
     Indication: PULMONARY ARTERIAL HYPERTENSION
     Route: 048
     Dates: start: 20081126
  2. ASPIRIN [Concomitant]
  3. PLAQUENIL [Concomitant]
  4. PREDNISONE TAB [Concomitant]
  5. IBUPROFEN [Concomitant]
  6. DILAUDID [Concomitant]
  7. VICODIN [Concomitant]
  8. ACTONEL [Concomitant]
  9. IRON [Concomitant]
  10. CALCIUM [Concomitant]

REACTIONS (1)
  - DEATH [None]
